FAERS Safety Report 9408342 (Version 1)
Quarter: 2013Q3

REPORT INFORMATION
  Report Type: Spontaneous
  Country: JP (occurrence: JP)
  Receive Date: 20130718
  Receipt Date: 20130718
  Transmission Date: 20140515
  Serious: Yes (Other)
  Sender: FDA-Public Use
  Company Number: JP-IAC JAPAN XML-GBR-2013-0014984

PATIENT
  Sex: Female

DRUGS (1)
  1. NORSPAN [Suspect]
     Indication: PRODUCT USED FOR UNKNOWN INDICATION
     Route: 062

REACTIONS (1)
  - Blood pressure decreased [Unknown]
